FAERS Safety Report 4301682-5 (Version None)
Quarter: 2004Q1

REPORT INFORMATION
  Report Type: 
  Country: None (occurrence: None)
  Receive Date: 20040218
  Receipt Date: 20031111
  Transmission Date: 20041129
  Serious: Yes (Other)
  Sender: FDA-Public Use
  Company Number: 2003-04-1223

PATIENT
  Age: 53 Year
  Sex: Female
  Weight: 80.7403 kg

DRUGS (5)
  1. PEG-INTRON [Suspect]
     Indication: HEPATITIS C
     Dosage: SUBCUTANEOUS
     Route: 058
     Dates: start: 20020901, end: 20021201
  2. REBETOL [Suspect]
     Indication: HEPATITIS C
     Dosage: 1000 MG QD ORAL
     Route: 048
     Dates: start: 20020901, end: 20021201
  3. VITAMIN B COMPLEX CAP [Concomitant]
  4. VITAMIN C [Concomitant]
  5. CENTRUM [Concomitant]

REACTIONS (2)
  - ENTEROCOLITIS HAEMORRHAGIC [None]
  - INJECTION SITE REACTION [None]
